FAERS Safety Report 4876607-4 (Version None)
Quarter: 2006Q1

REPORT INFORMATION
  Report Type: 
  Country: None (occurrence: None)
  Receive Date: 20060109
  Receipt Date: 20060109
  Transmission Date: 20060701
  Serious: Yes (Other)
  Sender: FDA-Public Use
  Company Number: None

PATIENT
  Age: 72 Year
  Sex: Male
  Weight: 115.6672 kg

DRUGS (2)
  1. CIALIS [Suspect]
     Indication: SEXUAL DYSFUNCTION
     Dosage: ONE
     Dates: start: 20050915, end: 20050915
  2. FLOMAX [Suspect]
     Dosage: ONE DAILY

REACTIONS (6)
  - ABNORMAL SENSATION IN EYE [None]
  - ASTHENOPIA [None]
  - BLINDNESS UNILATERAL [None]
  - DRUG INEFFECTIVE [None]
  - SEXUAL DYSFUNCTION [None]
  - VISION BLURRED [None]
